FAERS Safety Report 4361542-0 (Version None)
Quarter: 2004Q2

REPORT INFORMATION
  Report Type: 
  Country: None (occurrence: None)
  Receive Date: 20040521
  Receipt Date: 20040426
  Transmission Date: 20050107
  Serious: No
  Sender: FDA-Public Use
  Company Number: US-GLAXOSMITHKLINE-A0508438A

PATIENT
  Age: 51 Year
  Sex: Male

DRUGS (4)
  1. ZYBAN [Suspect]
     Dosage: 150MG PER DAY
     Route: 048
     Dates: start: 20040401
  2. HYDROCHLOROTHIAZIDE [Concomitant]
  3. ACCUPRIL [Concomitant]
  4. ZOCOR [Concomitant]

REACTIONS (1)
  - VISION BLURRED [None]
